FAERS Safety Report 24740128 (Version 1)
Quarter: 2024Q4

REPORT INFORMATION
  Report Type: Spontaneous
  Country: JP (occurrence: JP)
  Receive Date: 20241216
  Receipt Date: 20241216
  Transmission Date: 20250115
  Serious: Yes (Hospitalization, Other)
  Sender: BRISTOL-MYERS SQUIBB COMPANY
  Company Number: JP-BRISTOL-MYERS SQUIBB COMPANY-2024-192582

PATIENT
  Age: 73 Year
  Sex: Male
  Weight: 53 kg

DRUGS (13)
  1. YERVOY [Suspect]
     Active Substance: IPILIMUMAB
     Indication: Peritoneal mesothelioma malignant
     Route: 041
     Dates: start: 20240408, end: 20240408
  2. OPDIVO [Suspect]
     Active Substance: NIVOLUMAB
     Indication: Peritoneal mesothelioma malignant
     Route: 041
     Dates: start: 20240408, end: 20240408
  3. GANCICLOVIR [Suspect]
     Active Substance: GANCICLOVIR
     Indication: Cytomegalovirus oesophagitis
     Dates: start: 20240517, end: 20240529
  4. PREDNISOLONE [Suspect]
     Active Substance: PREDNISOLONE
     Indication: Immune-mediated oesophagitis
     Dates: start: 20240425, end: 20240514
  5. PREDNISOLONE [Suspect]
     Active Substance: PREDNISOLONE
     Indication: Immune-mediated gastritis
     Dates: start: 20240514
  6. PREDNISOLONE [Suspect]
     Active Substance: PREDNISOLONE
     Indication: Immune-mediated enterocolitis
  7. VITAMINS NOS [Concomitant]
     Active Substance: VITAMINS
     Indication: Product used for unknown indication
     Route: 048
     Dates: start: 20240401, end: 20240412
  8. AMLODINE [AMLODIPINE] [Concomitant]
     Indication: Product used for unknown indication
     Route: 048
     Dates: start: 20240404, end: 20240515
  9. AZILSARTAN KAMEDOXOMIL [Concomitant]
     Active Substance: AZILSARTAN KAMEDOXOMIL
     Indication: Product used for unknown indication
     Route: 048
     Dates: start: 20240404, end: 20240415
  10. CARVEDILOL [Concomitant]
     Active Substance: CARVEDILOL
     Indication: Product used for unknown indication
     Route: 048
     Dates: start: 20240404, end: 20240602
  11. SODIUM FERROUS CITRATE [Concomitant]
     Active Substance: SODIUM FERROUS CITRATE
     Indication: Product used for unknown indication
     Route: 048
     Dates: start: 20240404, end: 20240507
  12. SODIUM FERROUS CITRATE [Concomitant]
     Active Substance: SODIUM FERROUS CITRATE
     Route: 048
     Dates: start: 20240404, end: 20240507
  13. SODIUM FERROUS CITRATE [Concomitant]
     Active Substance: SODIUM FERROUS CITRATE
     Route: 048
     Dates: start: 20240404, end: 20240507

REACTIONS (5)
  - Immune-mediated enterocolitis [Not Recovered/Not Resolved]
  - Immune-mediated oesophagitis [Unknown]
  - Immune-mediated gastritis [Recovering/Resolving]
  - Cytomegalovirus oesophagitis [Unknown]
  - Encephalopathy [Unknown]

NARRATIVE: CASE EVENT DATE: 20240423
